FAERS Safety Report 18928966 (Version 1)
Quarter: 2021Q1

REPORT INFORMATION
  Report Type: Spontaneous
  Country: US (occurrence: US)
  Receive Date: 20210223
  Receipt Date: 20210223
  Transmission Date: 20210420
  Serious: No
  Sender: FDA-Public Use
  Company Number: US-TAKEDA-2021TUS011452

PATIENT
  Sex: Male
  Weight: 71.2 kg

DRUGS (2)
  1. GAMMAGARD LIQUID [Suspect]
     Active Substance: HUMAN IMMUNOGLOBULIN G
     Indication: IMMUNODEFICIENCY COMMON VARIABLE
     Dosage: 30 GRAM, EVERY 28 DAYS
     Route: 042
     Dates: start: 20200417
  2. MULTIVITAMIN (16) [Concomitant]
     Active Substance: VITAMINS

REACTIONS (2)
  - No adverse event [Unknown]
  - Inappropriate schedule of product administration [Unknown]
